FAERS Safety Report 5970353-1 (Version None)
Quarter: 2008Q4

REPORT INFORMATION
  Report Type: 
  Country: None (occurrence: None)
  Receive Date: 20081126
  Receipt Date: 20081119
  Transmission Date: 20090506
  Serious: Yes (Other)
  Sender: FDA-Public Use
  Company Number: US-PFIZER INC-2008098748

PATIENT
  Sex: Female
  Weight: 69.545 kg

DRUGS (2)
  1. CHANTIX [Suspect]
     Indication: SMOKING CESSATION THERAPY
     Dosage: FREQ:EVERY DAY
     Route: 048
     Dates: start: 20080823, end: 20081001
  2. XANAX [Concomitant]

REACTIONS (6)
  - ARTHRALGIA [None]
  - GAIT DISTURBANCE [None]
  - ORAL INFECTION [None]
  - PAIN IN EXTREMITY [None]
  - PNEUMONIA [None]
  - WEIGHT INCREASED [None]
